FAERS Safety Report 21303230 (Version 2)
Quarter: 2022Q3

REPORT INFORMATION
  Report Type: Spontaneous
  Country: JP (occurrence: JP)
  Receive Date: 20220907
  Receipt Date: 20220915
  Transmission Date: 20221026
  Serious: Yes (Hospitalization, Other)
  Sender: FDA-Public Use
  Company Number: JP-DSJP-DSJ-2022-131951

PATIENT
  Sex: Male

DRUGS (17)
  1. EDOXABAN TOSYLATE [Suspect]
     Active Substance: EDOXABAN TOSYLATE
     Indication: Atrial fibrillation
     Dosage: 30MG/DAY
     Route: 048
     Dates: end: 202106
  2. EDOXABAN TOSYLATE [Suspect]
     Active Substance: EDOXABAN TOSYLATE
     Dosage: 30MG/DAY
     Route: 048
     Dates: start: 20210624, end: 202106
  3. EDOXABAN TOSYLATE [Suspect]
     Active Substance: EDOXABAN TOSYLATE
     Dosage: 30MG/DAY
     Route: 048
     Dates: start: 202106, end: 202106
  4. DIGOXIN [Concomitant]
     Active Substance: DIGOXIN
     Dosage: 0.25MG/DAY
     Route: 048
  5. HARNAL [Concomitant]
     Active Substance: TAMSULOSIN HYDROCHLORIDE
     Dosage: 0.2MG/DAY
     Route: 048
  6. FEBUXOSTAT [Concomitant]
     Active Substance: FEBUXOSTAT
     Dosage: 20MG/DAY
     Route: 048
  7. CANDESARTAN CILEXETIL [Concomitant]
     Active Substance: CANDESARTAN CILEXETIL
     Dosage: 8MG/DAY
     Route: 048
  8. FAMOTIDINE [Concomitant]
     Active Substance: FAMOTIDINE
     Dosage: 20MG/DAY
     Route: 048
  9. ICOSAPENT ETHYL [Concomitant]
     Active Substance: ICOSAPENT ETHYL
     Dosage: UNK
     Route: 048
     Dates: end: 202106
  10. ICOSAPENT ETHYL [Concomitant]
     Active Substance: ICOSAPENT ETHYL
     Dosage: UNK
     Route: 048
     Dates: start: 20210624
  11. IFENPRODIL TARTRATE [Concomitant]
     Active Substance: IFENPRODIL TARTRATE
     Dosage: 10MG/DAY
     Route: 048
     Dates: end: 202106
  12. IFENPRODIL TARTRATE [Concomitant]
     Active Substance: IFENPRODIL TARTRATE
     Dosage: 10MG/DAY
     Route: 048
     Dates: start: 20210624
  13. CALONAL [Concomitant]
     Active Substance: ACETAMINOPHEN
     Dosage: UNK
     Route: 048
  14. TIZANIDINE HYDROCHLORIDE [Concomitant]
     Active Substance: TIZANIDINE HYDROCHLORIDE
     Dosage: 1MG/DAY
     Route: 048
  15. MAGNESIUM OXIDE [Concomitant]
     Active Substance: MAGNESIUM OXIDE
     Dosage: 330MG/DAY
     Route: 048
  16. SENNOSIDES A AND B [Concomitant]
     Active Substance: SENNOSIDES A AND B
     Dosage: 12MG/DAY
     Route: 048
  17. ONGLYZA [SAXAGLIPTIN HYDROCHLORIDE] [Concomitant]
     Dosage: 2.5MG/DAY
     Route: 048

REACTIONS (2)
  - Embolic stroke [Recovering/Resolving]
  - Intervertebral disc protrusion [Unknown]

NARRATIVE: CASE EVENT DATE: 20210601
